FAERS Safety Report 24643074 (Version 1)
Quarter: 2024Q4

REPORT INFORMATION
  Report Type: Spontaneous
  Country: CA (occurrence: CA)
  Receive Date: 20241120
  Receipt Date: 20241120
  Transmission Date: 20250114
  Serious: Yes (Other)
  Sender: PFIZER
  Company Number: CA-PFIZER INC-202400303065

PATIENT
  Age: 84 Year
  Sex: Male

DRUGS (1)
  1. VYNDAMAX [Suspect]
     Active Substance: TAFAMIDIS
     Indication: Cardiac amyloidosis
     Dosage: 61 MG, 1X/DAY
     Route: 048
     Dates: start: 20240609

REACTIONS (5)
  - Atrial fibrillation [Unknown]
  - Tricuspid valve incompetence [Unknown]
  - Back pain [Unknown]
  - Right ventricular hypertrophy [Unknown]
  - Ventricular hypertrophy [Unknown]
